FAERS Safety Report 5659655-6 (Version None)
Quarter: 2008Q1

REPORT INFORMATION
  Report Type: 
  Country: None (occurrence: None)
  Receive Date: 20080311
  Receipt Date: 20080229
  Transmission Date: 20080703
  Serious: Yes (Disabling)
  Sender: FDA-Public Use
  Company Number: US-ROCHE-550608

PATIENT
  Age: 63 Year
  Sex: Female
  Weight: 68.9 kg

DRUGS (1)
  1. BONIVA [Suspect]
     Indication: OSTEOPOROSIS POSTMENOPAUSAL
     Route: 048
     Dates: start: 20070401, end: 20080215

REACTIONS (3)
  - HEADACHE [None]
  - JOINT STIFFNESS [None]
  - OSTEONECROSIS [None]
